FAERS Safety Report 19705489 (Version 1)
Quarter: 2021Q3

REPORT INFORMATION
  Report Type: Report from Study
  Country: IN (occurrence: IN)
  Receive Date: 20210816
  Receipt Date: 20210816
  Transmission Date: 20211014
  Serious: Yes (Death, Hospitalization)
  Sender: FDA-Public Use
  Company Number: IN-MYLANLABS-2021M1050994

PATIENT

DRUGS (7)
  1. NORADRENALINE                      /00127501/ [Suspect]
     Active Substance: NOREPINEPHRINE
     Indication: SHOCK
     Dosage: 1 MICROGRAM/KILOGRAM, QMINUTE
     Route: 065
  2. DOPAMINE [Suspect]
     Active Substance: DOPAMINE HYDROCHLORIDE
     Indication: SHOCK
     Dosage: 20 MICROGRAM/KILOGRAM, QMINUTE
     Route: 065
  3. SODIUM CHLORIDE. [Concomitant]
     Active Substance: SODIUM CHLORIDE
     Indication: MEDICATION DILUTION
     Dosage: 50CC; 0.9% SODIUM?CHLORIDE SOLUTION (VIA CENTRALLY PLACED CATHETER)
  4. SILDENAFIL. [Suspect]
     Active Substance: SILDENAFIL
     Indication: SHOCK
     Dosage: UNK
     Route: 048
  5. EPINEPHRINE MYLAN [Suspect]
     Active Substance: EPINEPHRINE
     Indication: SHOCK
     Dosage: 1.35 MICROGRAM/KILOGRAM, QMINUTE
     Route: 065
  6. VASOPRESSIN. [Suspect]
     Active Substance: VASOPRESSIN
     Indication: SHOCK
     Dosage: INFUSION; 0.0002 IU/KG/MIN (VIA CENTRALLY PLACED CATHETER)
  7. DOBUTAMINE [Suspect]
     Active Substance: DOBUTAMINE HYDROCHLORIDE
     Indication: SHOCK
     Dosage: 15 MICROGRAM/KILOGRAM, QMINUTE
     Route: 065

REACTIONS (1)
  - Therapy non-responder [Fatal]
